FAERS Safety Report 7520138-X (Version None)
Quarter: 2011Q2

REPORT INFORMATION
  Report Type: 
  Country: None (occurrence: None)
  Receive Date: 20110602
  Receipt Date: 20110524
  Transmission Date: 20111010
  Serious: Yes (Other)
  Sender: FDA-Public Use
  Company Number: JP-ABBOTT-11P-087-0729472-00

PATIENT
  Age: 3 Year
  Sex: Male

DRUGS (5)
  1. ASVERIN [Concomitant]
     Indication: PRODUCT USED FOR UNKNOWN INDICATION
     Dosage: DRY SYRUP
     Dates: start: 20110414
  2. MUCODYNE [Concomitant]
     Indication: PRODUCT USED FOR UNKNOWN INDICATION
     Dosage: NOS
     Route: 048
     Dates: start: 20110414
  3. WIDECILLIN [Concomitant]
     Indication: PRODUCT USED FOR UNKNOWN INDICATION
     Dosage: NOS
     Route: 048
     Dates: start: 20110414, end: 20110414
  4. CEFDINIR [Suspect]
     Indication: PRODUCT USED FOR UNKNOWN INDICATION
     Route: 048
     Dates: start: 20110415, end: 20110415
  5. MUCOSOLVAN [Concomitant]
     Indication: PRODUCT USED FOR UNKNOWN INDICATION
     Dosage: DRY SYRUP
     Dates: start: 20110414

REACTIONS (1)
  - ANAPHYLACTIC REACTION [None]
